FAERS Safety Report 4594052-6 (Version None)
Quarter: 2005Q1

REPORT INFORMATION
  Report Type: 
  Country: None (occurrence: None)
  Receive Date: 20050301
  Receipt Date: 20050224
  Transmission Date: 20050727
  Serious: Yes (Hospitalization)
  Sender: FDA-Public Use
  Company Number: NL-MERCK-0502NLD00053

PATIENT
  Age: 81 Year
  Sex: Female

DRUGS (8)
  1. VIOXX [Suspect]
     Indication: RHEUMATOID ARTHRITIS
     Route: 048
     Dates: start: 20010101
  2. ASPIRIN [Concomitant]
     Route: 048
     Dates: end: 20040301
  3. FOLIC ACID [Concomitant]
     Route: 048
     Dates: end: 20040301
  4. GLIMEPIRIDE [Concomitant]
     Route: 048
     Dates: end: 20040301
  5. ASPIRIN CALCIUM [Concomitant]
     Route: 048
     Dates: end: 20040301
  6. ATENOLOL [Concomitant]
     Route: 048
     Dates: end: 20040301
  7. ACENOCOUMAROL [Concomitant]
     Route: 048
     Dates: start: 20040301
  8. PANTOPRAZOLE SODIUM [Concomitant]
     Route: 048
     Dates: start: 20040301

REACTIONS (1)
  - MYOCARDIAL INFARCTION [None]
